FAERS Safety Report 5293121-5 (Version None)
Quarter: 2007Q2

REPORT INFORMATION
  Report Type: 
  Country: None (occurrence: None)
  Receive Date: 20070404
  Receipt Date: 20070328
  Transmission Date: 20071010
  Serious: Yes (Death, Hospitalization)
  Sender: FDA-Public Use
  Company Number: 163-21880-06081377

PATIENT
  Age: 68 Year
  Sex: Male

DRUGS (3)
  1. REVLIMID [Suspect]
     Indication: MYELODYSPLASTIC SYNDROME
     Dosage: 10 MG, 1 IN 1 D, ORAL
     Route: 048
     Dates: start: 20061006, end: 20061007
  2. ANTIBIOTICS (ANTIBIOTICS) [Concomitant]
  3. ANTIFUNGALS (ANTIFUNGALS) [Concomitant]

REACTIONS (5)
  - BACTERIAL INFECTION [None]
  - ERYTHEMA [None]
  - LUNG INFECTION [None]
  - PNEUMONIA [None]
  - RESPIRATORY FAILURE [None]
